FAERS Safety Report 5321794-7 (Version None)
Quarter: 2007Q2

REPORT INFORMATION
  Report Type: 
  Country: None (occurrence: None)
  Receive Date: 20070507
  Receipt Date: 20070426
  Transmission Date: 20071010
  Serious: Yes (Hospitalization)
  Sender: FDA-Public Use
  Company Number: 2007EN000124

PATIENT
  Age: 50 Year
  Sex: Male
  Weight: 69.4003 kg

DRUGS (13)
  1. OPANA ER [Suspect]
     Indication: PAIN
     Dosage: 40 MG; BID;
     Dates: start: 20070406
  2. DEMEROL [Suspect]
     Indication: PAIN
  3. FENTORA [Concomitant]
  4. CYMBALTA [Concomitant]
  5. SEROQUEL [Concomitant]
  6. LEXAPRO [Concomitant]
  7. LAMICTAL [Concomitant]
  8. PROVIGIL [Concomitant]
  9. LASIX [Concomitant]
  10. METANX [Concomitant]
  11. VALIUM [Concomitant]
  12. METHADONE HCL [Concomitant]
  13. DEMEROL [Concomitant]

REACTIONS (2)
  - PHLEBITIS [None]
  - PULMONARY THROMBOSIS [None]
